FAERS Safety Report 25154489 (Version 2)
Quarter: 2025Q4

REPORT INFORMATION
  Report Type: Report from Study
  Country: CA (occurrence: None)
  Receive Date: 20250403
  Receipt Date: 20251126
  Transmission Date: 20260118
  Serious: Yes (Other)
  Sender: UCB
  Company Number: CA-UCBSA-2024062228

PATIENT
  Age: 59 Year

DRUGS (7)
  1. CERTOLIZUMAB PEGOL [Interacting]
     Active Substance: CERTOLIZUMAB PEGOL
     Indication: Rheumatoid arthritis
     Dosage: 400 MILLIGRAM, EV 2 WEEKS(QOW)
  2. CERTOLIZUMAB PEGOL [Interacting]
     Active Substance: CERTOLIZUMAB PEGOL
     Dosage: 200 MILLIGRAM, EV 2 WEEKS(QOW)
  3. CERTOLIZUMAB PEGOL [Interacting]
     Active Substance: CERTOLIZUMAB PEGOL
     Dosage: 200 MILLIGRAM, EV 3 WEEKS
  4. NUCALA [Suspect]
     Active Substance: MEPOLIZUMAB
     Indication: Product used for unknown indication
  5. RAMIPRIL [Concomitant]
     Active Substance: RAMIPRIL
     Indication: Product used for unknown indication
     Dosage: UNK
  6. CELEXA [Concomitant]
     Active Substance: CITALOPRAM HYDROBROMIDE
     Indication: Depression
     Dosage: UNK
  7. Lompariate [Concomitant]

REACTIONS (8)
  - Hip surgery [Unknown]
  - Rheumatoid arthritis [Unknown]
  - Incision site impaired healing [Unknown]
  - Dyspnoea [Unknown]
  - Infection [Recovered/Resolved]
  - Drug interaction [Unknown]
  - Off label use [Unknown]
  - Drug ineffective [Unknown]
